FAERS Safety Report 9749684 (Version 1)
Quarter: 2013Q4

REPORT INFORMATION
  Report Type: Spontaneous
  Country: IT (occurrence: IT)
  Receive Date: 20131212
  Receipt Date: 20131212
  Transmission Date: 20140711
  Serious: Yes (Hospitalization)
  Sender: FDA-Public Use
  Company Number: IT-PFIZER INC-2013353263

PATIENT
  Age: 64 Year
  Sex: Female

DRUGS (9)
  1. ADRIBLASTINA [Suspect]
     Indication: DIFFUSE LARGE B-CELL LYMPHOMA
     Dosage: 85 MG, CYCLIC
     Route: 042
     Dates: start: 20130611, end: 20131112
  2. VINCRISTINA PFIZER ITALIA [Interacting]
     Indication: DIFFUSE LARGE B-CELL LYMPHOMA
     Dosage: 2 MG, CYCLIC
     Route: 042
     Dates: start: 20130611, end: 20131112
  3. MABTHERA [Interacting]
     Indication: DIFFUSE LARGE B-CELL LYMPHOMA
     Dosage: 622.5 MG, CYCLIC
     Route: 042
     Dates: start: 20130611, end: 20131112
  4. URBASON SOLUBILE [Concomitant]
     Indication: PREMEDICATION
     Dosage: 40 MG, UNK
     Route: 042
     Dates: start: 20130611, end: 20131112
  5. KYTRIL [Concomitant]
     Indication: PROPHYLAXIS OF NAUSEA AND VOMITING
     Dosage: 3 MG, UNK
     Route: 042
     Dates: start: 20130611, end: 20131112
  6. TACHIPIRINA [Concomitant]
     Indication: PREMEDICATION
     Dosage: 1 G, UNK
     Route: 048
     Dates: start: 20130611, end: 20131112
  7. TRIMETON [Concomitant]
     Indication: PREMEDICATION
     Dosage: 10 MG, UNK
     Route: 042
     Dates: start: 20130611, end: 20131112
  8. ZANTAC [Concomitant]
     Indication: PROPHYLAXIS
     Dosage: 50 MG, UNK
     Route: 042
     Dates: start: 20130611, end: 20131112
  9. ENDOXAN-BAXTER [Concomitant]
     Indication: CHEMOTHERAPY
     Dosage: 1200 MG, UNK
     Route: 042
     Dates: start: 20130611, end: 20131112

REACTIONS (2)
  - Drug interaction [Recovering/Resolving]
  - Venous thrombosis [Recovering/Resolving]
